FAERS Safety Report 4916289-6 (Version None)
Quarter: 2006Q1

REPORT INFORMATION
  Report Type: 
  Country: None (occurrence: None)
  Receive Date: 20060113
  Receipt Date: 20050922
  Transmission Date: 20060701
  Serious: No
  Sender: FDA-Public Use
  Company Number: 2005SP003178

PATIENT
  Age: 83 Year
  Sex: Female
  Weight: 63.5036 kg

DRUGS (1)
  1. LUNESTA [Suspect]
     Dosage: 1 MG;HS;ORAL
     Route: 048
     Dates: start: 20050101, end: 20050101

REACTIONS (4)
  - DRUG INEFFECTIVE [None]
  - DYSGEUSIA [None]
  - HEADACHE [None]
  - INSOMNIA [None]
